FAERS Safety Report 24708798 (Version 4)
Quarter: 2025Q1

REPORT INFORMATION
  Report Type: Report from Study
  Country: CA (occurrence: CA)
  Receive Date: 20241207
  Receipt Date: 20250128
  Transmission Date: 20250408
  Serious: Yes (Other)
  Sender: JOHNSON AND JOHNSON
  Company Number: CA-JNJFOC-20241174753

PATIENT
  Age: 64 Year
  Sex: Female

DRUGS (9)
  1. SIMPONI [Suspect]
     Active Substance: GOLIMUMAB
     Indication: Rheumatoid arthritis
     Route: 058
     Dates: start: 20241125
  2. HYDROXYCHLOROQUINE [Concomitant]
     Active Substance: HYDROXYCHLOROQUINE
  3. METHOTREXATE [Concomitant]
     Active Substance: METHOTREXATE
  4. ANASTROZOLE [Concomitant]
     Active Substance: ANASTROZOLE
  5. FOLIC ACID [Concomitant]
     Active Substance: FOLIC ACID
  6. MCT oil [Concomitant]
  7. VITAMIN D [Concomitant]
     Active Substance: VITAMIN D NOS
  8. PROBIOTICS NOS [Concomitant]
     Active Substance: PROBIOTICS NOS
  9. Curcurmin [Concomitant]

REACTIONS (8)
  - Eye haemorrhage [Unknown]
  - Rosacea [Unknown]
  - Erythema [Unknown]
  - Purpura [Not Recovered/Not Resolved]
  - Sinusitis [Recovering/Resolving]
  - Feeling jittery [Unknown]
  - Joint swelling [Recovering/Resolving]
  - Nasopharyngitis [Not Recovered/Not Resolved]

NARRATIVE: CASE EVENT DATE: 20250101
